FAERS Safety Report 8037357-9 (Version None)
Quarter: 2012Q1

REPORT INFORMATION
  Report Type: 
  Country: None (occurrence: None)
  Receive Date: 20120111
  Receipt Date: 20120104
  Transmission Date: 20120608
  Serious: Yes (Hospitalization)
  Sender: FDA-Public Use
  Company Number: SE-JNJFOC-20120100939

PATIENT
  Age: 41 Year
  Sex: Male

DRUGS (2)
  1. REMICADE [Suspect]
     Indication: COLITIS ULCERATIVE
     Route: 042
     Dates: start: 20080101, end: 20080101
  2. HUMIRA [Suspect]
     Indication: COLITIS ULCERATIVE
     Dates: start: 20080101, end: 20080101

REACTIONS (1)
  - COLON CANCER METASTATIC [None]
